FAERS Safety Report 21401449 (Version 4)
Quarter: 2022Q4

REPORT INFORMATION
  Report Type: Spontaneous
  Country: CA (occurrence: CA)
  Receive Date: 20221003
  Receipt Date: 20221114
  Transmission Date: 20230113
  Serious: Yes (Other)
  Sender: FDA-Public Use
  Company Number: CA-PFIZER INC-202201188134

PATIENT
  Age: 26 Year
  Sex: Female

DRUGS (2)
  1. ABRILADA [Suspect]
     Active Substance: ADALIMUMAB-AFZB
     Indication: Hidradenitis
     Dosage: 160 MG, PREFILLED PEN W0 160MG, W2 80MG, 40 MG EVERY OTHER WEEK
     Route: 058
     Dates: start: 20220808
  2. ABRILADA [Suspect]
     Active Substance: ADALIMUMAB-AFZB
     Dosage: 160 MG. PREFILLED PEN W0 160MG, W2 80MG, 40 MG EVERY OTHER WEEK
     Route: 058
     Dates: start: 20220926

REACTIONS (4)
  - Sinusitis bacterial [Unknown]
  - Ear infection bacterial [Unknown]
  - Paranasal sinus discomfort [Not Recovered/Not Resolved]
  - Headache [Not Recovered/Not Resolved]

NARRATIVE: CASE EVENT DATE: 20220808
